FAERS Safety Report 16389233 (Version 1)
Quarter: 2019Q2

REPORT INFORMATION
  Report Type: Spontaneous
  Country: US (occurrence: US)
  Receive Date: 20190429
  Receipt Date: 20190429
  Transmission Date: 20190711
  Serious: No
  Sender: FDA-Public Use
  Company Number: None

PATIENT
  Age: 26 Year
  Sex: Female

DRUGS (1)
  1. HYDROXYPROG 250MG/ML (1ML) SDV [Suspect]
     Active Substance: HYDROXYPROGESTERONE
     Dates: start: 201904, end: 201904

REACTIONS (4)
  - Depression [None]
  - Blood pressure increased [None]
  - Blood glucose increased [None]
  - Affect lability [None]

NARRATIVE: CASE EVENT DATE: 20190429
